FAERS Safety Report 7942974-8 (Version None)
Quarter: 2011Q4

REPORT INFORMATION
  Report Type: 
  Country: None (occurrence: None)
  Receive Date: 20111128
  Receipt Date: 20111117
  Transmission Date: 20120403
  Serious: Yes (Other)
  Sender: FDA-Public Use
  Company Number: JP-UCBSA-046070

PATIENT
  Age: 25 Year
  Sex: Female

DRUGS (3)
  1. KEPPRA [Suspect]
     Route: 048
     Dates: start: 20110401, end: 20110101
  2. KEPPRA [Suspect]
     Route: 048
     Dates: start: 20110101
  3. PHENYTOIN [Suspect]
     Dosage: UNKNOWN DOSAGE
     Route: 048

REACTIONS (2)
  - ANTICONVULSANT DRUG LEVEL INCREASED [None]
  - EPILEPSY [None]
